FAERS Safety Report 6509436-6 (Version None)
Quarter: 2009Q4

REPORT INFORMATION
  Report Type: 
  Country: None (occurrence: None)
  Receive Date: 20091222
  Receipt Date: 20091211
  Transmission Date: 20100525
  Serious: Yes (Hospitalization)
  Sender: FDA-Public Use
  Company Number: US-JNJFOC-20091100416

PATIENT
  Sex: Male
  Weight: 44.3 kg

DRUGS (5)
  1. REMICADE [Suspect]
     Dosage: 3RD DOSE
     Route: 042
     Dates: start: 20090701, end: 20091005
  2. REMICADE [Suspect]
     Dosage: MAINTENANCE DOSE
     Route: 042
     Dates: start: 20090701, end: 20091005
  3. REMICADE [Suspect]
     Indication: CROHN'S DISEASE
     Dosage: INDUCTION PHASE
     Route: 042
     Dates: start: 20090701, end: 20091005
  4. FLAGYL [Concomitant]
     Indication: CROHN'S DISEASE
  5. PENTASA [Concomitant]
     Indication: CROHN'S DISEASE

REACTIONS (8)
  - ABDOMINAL PAIN LOWER [None]
  - DIARRHOEA [None]
  - ENCEPHALOPATHY [None]
  - GRAND MAL CONVULSION [None]
  - HYPERTENSION [None]
  - HYPOPERFUSION [None]
  - PANCYTOPENIA [None]
  - PROCTALGIA [None]
